FAERS Safety Report 26177218 (Version 1)
Quarter: 2025Q4

REPORT INFORMATION
  Report Type: Spontaneous
  Country: US (occurrence: US)
  Receive Date: 20251219
  Receipt Date: 20251219
  Transmission Date: 20260118
  Serious: No
  Sender: SANOFI AVENTIS
  Company Number: US-SA-2025SA375690

PATIENT
  Sex: Male
  Weight: 15.873 kg

DRUGS (3)
  1. DUPIXENT [Suspect]
     Active Substance: DUPILUMAB
     Indication: Dermatitis atopic
     Dosage: 300 MG, Q4W
     Route: 058
  2. HYDROXYZINE HYDROCHLORIDE [Concomitant]
     Active Substance: HYDROXYZINE HYDROCHLORIDE
     Dosage: UNK
  3. COCONUT OIL [Concomitant]
     Active Substance: COCONUT OIL
     Dosage: UNK

REACTIONS (3)
  - Burning sensation [Unknown]
  - Skin fissures [Unknown]
  - Therapeutic response decreased [Unknown]
